FAERS Safety Report 9885909 (Version 1)
Quarter: 2014Q1

REPORT INFORMATION
  Report Type: Spontaneous
  Country: US (occurrence: None)
  Receive Date: 20140207
  Receipt Date: 20140207
  Transmission Date: 20141002
  Serious: No
  Sender: FDA-Public Use
  Company Number: None

PATIENT
  Age: 61 Year
  Sex: Male

DRUGS (10)
  1. LETAIRIS [Suspect]
     Indication: PULMONARY HYPERTENSION
     Route: 048
     Dates: start: 20131212, end: 20131217
  2. OMEPRAZOLE [Concomitant]
  3. FAMOTIDINE [Concomitant]
  4. SLIDENAFIL [Concomitant]
  5. BUMETANIDE [Concomitant]
  6. CHLORTHALIDONE [Concomitant]
  7. SPIRONOLACTONE [Concomitant]
  8. MONTELUKAST [Concomitant]
  9. TIOTROPIUM [Concomitant]
  10. IPRATROPIUM/ALBUTEROL [Concomitant]

REACTIONS (5)
  - Dyspnoea [None]
  - Weight increased [None]
  - Chest discomfort [None]
  - Oedema [None]
  - Exercise tolerance decreased [None]
